FAERS Safety Report 8074581-3 (Version None)
Quarter: 2012Q1

REPORT INFORMATION
  Report Type: 
  Country: None (occurrence: None)
  Receive Date: 20120126
  Receipt Date: 20120120
  Transmission Date: 20120608
  Serious: Yes (Other)
  Sender: FDA-Public Use
  Company Number: JP-PFIZER INC-2012017422

PATIENT
  Age: 51 Year
  Sex: Male

DRUGS (2)
  1. LYRICA [Suspect]
     Dosage: 75 MG, 2X/DAY, SUNDAY AND SATURDAY
     Route: 048
     Dates: start: 20111101, end: 20120111
  2. LYRICA [Suspect]
     Dosage: 75 MG/DAY (AT NIGHT), MONDAY TO FRIDAY
     Route: 048
     Dates: start: 20111101, end: 20120111

REACTIONS (1)
  - CONVULSION [None]
